FAERS Safety Report 7524442-0 (Version None)
Quarter: 2011Q2

REPORT INFORMATION
  Report Type: 
  Country: None (occurrence: None)
  Receive Date: 20110525
  Receipt Date: 20110511
  Transmission Date: 20111010
  Serious: Yes (Other)
  Sender: FDA-Public Use
  Company Number: TRP_07744_2011

PATIENT
  Sex: Male

DRUGS (2)
  1. RIBAVIRIN [Suspect]
     Indication: HEPATITIS C
     Dosage: (DF)
     Dates: start: 20070101
  2. PEGINTERFERON (PEGYLATED INTERFERON) [Suspect]
     Indication: HEPATITIS C
     Dosage: (DF)
     Dates: start: 20070101

REACTIONS (3)
  - BLOOD CREATININE INCREASED [None]
  - CREATININE RENAL CLEARANCE DECREASED [None]
  - CEREBELLAR SYNDROME [None]
